FAERS Safety Report 9908733 (Version 1)
Quarter: 2014Q1

REPORT INFORMATION
  Report Type: Spontaneous
  Country: US (occurrence: US)
  Receive Date: 20140219
  Receipt Date: 20140219
  Transmission Date: 20141002
  Serious: No
  Sender: FDA-Public Use
  Company Number: US-PFIZER INC-2014046378

PATIENT
  Age: 54 Year
  Sex: Female

DRUGS (9)
  1. LYRICA [Suspect]
     Dosage: 150 MG, 2X/DAY
  2. EFFEXOR XR [Suspect]
     Dosage: UNK
  3. SIMVASTATIN [Suspect]
     Dosage: UNK
  4. VENLAFAXINE HCL [Suspect]
     Dosage: UNK
  5. METHOCARBAMOL [Suspect]
     Dosage: UNK
  6. OMEPRAZOLE [Suspect]
     Dosage: UNK
  7. QUETIAPINE FUMARATE [Suspect]
     Dosage: UNK
  8. SEROQUEL [Suspect]
     Dosage: UNK
  9. FENTANYL [Suspect]
     Dosage: UNK

REACTIONS (1)
  - Drug hypersensitivity [Unknown]
